FAERS Safety Report 6214554-6 (Version None)
Quarter: 2009Q2

REPORT INFORMATION
  Report Type: 
  Country: None (occurrence: None)
  Receive Date: 20090604
  Receipt Date: 20090527
  Transmission Date: 20091009
  Serious: Yes (Hospitalization)
  Sender: FDA-Public Use
  Company Number: NL-AVENTIS-200913941GDDC

PATIENT
  Age: 57 Year
  Sex: Female

DRUGS (1)
  1. TELFAST                            /01314201/ [Suspect]
     Route: 048
     Dates: start: 20090401, end: 20090410

REACTIONS (2)
  - BRADYCARDIA [None]
  - FATIGUE [None]
